FAERS Safety Report 8202778-8 (Version None)
Quarter: 2012Q1

REPORT INFORMATION
  Report Type: 
  Country: None (occurrence: None)
  Receive Date: 20120312
  Receipt Date: 20120312
  Transmission Date: 20120608
  Serious: Yes (Hospitalization)
  Sender: FDA-Public Use
  Company Number: None

PATIENT
  Age: 18 Year
  Sex: Female
  Weight: 54.431 kg

DRUGS (2)
  1. CONCERTA [Suspect]
     Indication: ATTENTION DEFICIT/HYPERACTIVITY DISORDER
     Dosage: 18 MG
     Route: 048
     Dates: start: 20060827, end: 20120211
  2. ZOLOFT [Concomitant]
     Indication: DEPRESSION
     Route: 048

REACTIONS (4)
  - CONFUSIONAL STATE [None]
  - BIPOLAR DISORDER [None]
  - MANIA [None]
  - PSYCHOTIC DISORDER [None]
